FAERS Safety Report 6538265-2 (Version None)
Quarter: 2010Q1

REPORT INFORMATION
  Report Type: 
  Country: None (occurrence: None)
  Receive Date: 20100112
  Receipt Date: 20100112
  Transmission Date: 20100710
  Serious: Yes (Hospitalization)
  Sender: FDA-Public Use
  Company Number: None

PATIENT
  Sex: Female
  Weight: 63.05 kg

DRUGS (2)
  1. PEGASYS [Suspect]
     Indication: HEPATITIS C
     Dosage: 180 MCG PREFILLED SYRINGE WEEKLY SQ
     Route: 058
     Dates: start: 20091228
  2. RIBAVIRIN [Suspect]
     Indication: HEPATITIS C
     Dosage: 100MG DAILY PO
     Route: 048
     Dates: start: 20091228

REACTIONS (3)
  - ANAEMIA [None]
  - BRADYCARDIA [None]
  - LOSS OF CONSCIOUSNESS [None]
